FAERS Safety Report 8600194-8 (Version None)
Quarter: 2012Q3

REPORT INFORMATION
  Report Type: 
  Country: None (occurrence: None)
  Receive Date: 20120817
  Receipt Date: 20120810
  Transmission Date: 20120928
  Serious: Yes (Other)
  Sender: FDA-Public Use
  Company Number: US-BIOGENIDEC-2012BI030940

PATIENT
  Age: 58 Year
  Sex: Female

DRUGS (3)
  1. AVONEX [Suspect]
     Indication: MULTIPLE SCLEROSIS
     Route: 030
     Dates: start: 19970709, end: 20090306
  2. AVONEX [Suspect]
     Route: 030
     Dates: start: 20090101, end: 20090101
  3. AVONEX [Suspect]
     Route: 030
     Dates: start: 20090822

REACTIONS (5)
  - INJECTION SITE ERYTHEMA [None]
  - ASTHMA [None]
  - PNEUMONIA [None]
  - INJECTION SITE HAEMATOMA [None]
  - PULMONARY FIBROSIS [None]
